FAERS Safety Report 6486518-9 (Version None)
Quarter: 2009Q4

REPORT INFORMATION
  Report Type: 
  Country: None (occurrence: None)
  Receive Date: 20091210
  Receipt Date: 20091110
  Transmission Date: 20100525
  Serious: No
  Sender: FDA-Public Use
  Company Number: US-JNJFOC-20091103477

PATIENT
  Sex: Male
  Weight: 88 kg

DRUGS (2)
  1. INVEGA [Suspect]
     Indication: DRUG THERAPY
     Route: 048
     Dates: start: 20091019, end: 20091104
  2. FENTANYL [Suspect]
     Indication: PAIN
     Route: 061
     Dates: start: 20091104

REACTIONS (1)
  - SOMNOLENCE [None]
